FAERS Safety Report 9996350 (Version 1)
Quarter: 2014Q1

REPORT INFORMATION
  Report Type: Spontaneous
  Country: US (occurrence: US)
  Receive Date: 20140311
  Receipt Date: 20140311
  Transmission Date: 20141002
  Serious: Yes (Other)
  Sender: FDA-Public Use
  Company Number: US-GLAXOSMITHKLINE-A1063565A

PATIENT
  Age: 59 Year
  Sex: Female

DRUGS (13)
  1. LOVAZA [Suspect]
     Indication: BLOOD TRIGLYCERIDES INCREASED
     Dosage: 2G TWICE PER DAY
     Route: 048
     Dates: start: 2011
  2. DIOVAN [Concomitant]
  3. LABETALOL [Concomitant]
  4. CALCIUM [Concomitant]
  5. EFFIENT [Concomitant]
  6. ZOLOFT [Concomitant]
  7. TRICOR [Concomitant]
  8. PROTONIX [Concomitant]
  9. ALDACTONE [Concomitant]
  10. IMDUR [Concomitant]
  11. NORVASC [Concomitant]
  12. DOXEPIN HCL [Concomitant]
  13. RESTORIL [Concomitant]

REACTIONS (3)
  - Diabetes mellitus [Not Recovered/Not Resolved]
  - Laryngitis [Not Recovered/Not Resolved]
  - Nasopharyngitis [Not Recovered/Not Resolved]
